FAERS Safety Report 8016130-1 (Version None)
Quarter: 2011Q4

REPORT INFORMATION
  Report Type: 
  Country: None (occurrence: None)
  Receive Date: 20111228
  Receipt Date: 20111228
  Transmission Date: 20120403
  Serious: Yes (Hospitalization)
  Sender: FDA-Public Use
  Company Number: None

PATIENT
  Age: 56 Year
  Sex: Male
  Weight: 79.6 kg

DRUGS (3)
  1. MIRTAZAPINE [Suspect]
     Indication: INSOMNIA
     Dosage: 15 MG HS PO
     Route: 048
     Dates: start: 20101217, end: 20110705
  2. MIRTAZAPINE [Suspect]
     Indication: AFFECTIVE DISORDER
     Dosage: 15 MG HS PO
     Route: 048
     Dates: start: 20101217, end: 20110705
  3. HYDROXYZINE [Suspect]
     Indication: ANXIETY
     Dosage: 25 MG TID PO
     Route: 048
     Dates: start: 20110218, end: 20110705

REACTIONS (3)
  - CONFUSIONAL STATE [None]
  - MENTAL STATUS CHANGES [None]
  - INCONTINENCE [None]
